FAERS Safety Report 5482757-4 (Version None)
Quarter: 2007Q4

REPORT INFORMATION
  Report Type: 
  Country: None (occurrence: None)
  Receive Date: 20071011
  Receipt Date: 20071001
  Transmission Date: 20080405
  Serious: Yes (Other)
  Sender: FDA-Public Use
  Company Number: US-PFIZER INC-2007073071

PATIENT
  Sex: Female
  Weight: 56.7 kg

DRUGS (7)
  1. CHANTIX [Suspect]
     Indication: SMOKING CESSATION THERAPY
     Dates: start: 20070815, end: 20070822
  2. PLAVIX [Concomitant]
     Indication: COAGULOPATHY
  3. EVISTA [Concomitant]
     Indication: OSTEOPOROSIS
  4. NEURONTIN [Concomitant]
  5. ALL OTHER THERAPEUTIC PRODUCTS [Concomitant]
  6. PRILOSEC [Concomitant]
  7. ACIPHEX [Concomitant]
     Indication: GASTROOESOPHAGEAL REFLUX DISEASE

REACTIONS (3)
  - PAIN IN EXTREMITY [None]
  - POOR QUALITY SLEEP [None]
  - SCAN BRAIN [None]
